FAERS Safety Report 8177700-3 (Version None)
Quarter: 2012Q1

REPORT INFORMATION
  Report Type: 
  Country: None (occurrence: None)
  Receive Date: 20120301
  Receipt Date: 20120227
  Transmission Date: 20120608
  Serious: Yes (Other)
  Sender: FDA-Public Use
  Company Number: PHHY2012FR013897

PATIENT
  Sex: Male
  Weight: 81 kg

DRUGS (5)
  1. TELZIR [Concomitant]
     Indication: HIV TEST POSITIVE
  2. ZOLEDRONOC ACID [Suspect]
     Indication: OSTEOPOROSIS
     Dosage: 5 MG, YEARLY
     Route: 042
     Dates: start: 20101001
  3. OMACOR [Concomitant]
     Indication: HIV TEST POSITIVE
     Dosage: UNK
  4. TRUVADA [Concomitant]
     Indication: HIV TEST POSITIVE
     Dosage: UNK
  5. NORVIR [Concomitant]
     Indication: HIV TEST POSITIVE
     Dosage: UNK

REACTIONS (1)
  - TACHYCARDIA [None]
